FAERS Safety Report 25387383 (Version 1)
Quarter: 2025Q2

REPORT INFORMATION
  Report Type: Spontaneous
  Country: CN (occurrence: CN)
  Receive Date: 20250602
  Receipt Date: 20250602
  Transmission Date: 20250717
  Serious: Yes (Hospitalization)
  Sender: ABBVIE
  Company Number: CN-PFIZER INC-PV202500062712

PATIENT
  Age: 48 Year
  Sex: Male
  Weight: 105 kg

DRUGS (3)
  1. AVIBACTAM SODIUM\CEFTAZIDIME [Suspect]
     Active Substance: AVIBACTAM SODIUM\CEFTAZIDIME
     Indication: Enterobacter infection
     Route: 041
     Dates: start: 20250501, end: 20250512
  2. AVIBACTAM SODIUM\CEFTAZIDIME [Suspect]
     Active Substance: AVIBACTAM SODIUM\CEFTAZIDIME
     Indication: Enterobacter infection
     Route: 041
     Dates: start: 20250323, end: 20250423
  3. TYGACIL [Concomitant]
     Active Substance: TIGECYCLINE
     Indication: Anti-infective therapy
     Route: 041
     Dates: start: 20250501, end: 20250512

REACTIONS (2)
  - Sepsis [Unknown]
  - Clostridium difficile colitis [Recovering/Resolving]

NARRATIVE: CASE EVENT DATE: 20250401
